FAERS Safety Report 15677053 (Version 2)
Quarter: 2019Q4

REPORT INFORMATION
  Report Type: Spontaneous
  Country: BG (occurrence: BG)
  Receive Date: 20181130
  Receipt Date: 20191002
  Transmission Date: 20200122
  Serious: Yes (Other)
  Sender: FDA-Public Use
  Company Number: BG-009507513-1811BGR008793

PATIENT
  Age: 38 Year
  Sex: Male

DRUGS (3)
  1. RIBAVIRIN. [Suspect]
     Active Substance: RIBAVIRIN
     Indication: CHRONIC HEPATITIS C
     Dosage: UNK
     Route: 065
  2. HARVONI [Suspect]
     Active Substance: LEDIPASVIR\SOFOSBUVIR
     Indication: CHRONIC HEPATITIS C
     Dosage: 1 DF
     Route: 065
  3. ZEFFIX [Concomitant]
     Active Substance: LAMIVUDINE
     Dosage: UNK
     Dates: start: 2017

REACTIONS (2)
  - Hepatitis C [Unknown]
  - Drug ineffective [Unknown]
